FAERS Safety Report 25865801 (Version 1)
Quarter: 2025Q3

REPORT INFORMATION
  Report Type: Spontaneous
  Country: US (occurrence: US)
  Receive Date: 20250930
  Receipt Date: 20250930
  Transmission Date: 20251020
  Serious: No
  Sender: PURDUE
  Company Number: US-PURDUE PHARMA-USA-2025-0320980

PATIENT
  Sex: Female

DRUGS (1)
  1. OXYCONTIN [Suspect]
     Active Substance: OXYCODONE HYDROCHLORIDE
     Indication: Product used for unknown indication
     Dosage: 80 MILLIGRAM, TID (3X/DAY AT ONE POINT) FOR 20 YEARS
     Route: 048

REACTIONS (4)
  - Weight decreased [Unknown]
  - Dyspepsia [Unknown]
  - Product formulation issue [Unknown]
  - Adverse event [Unknown]
